FAERS Safety Report 4335973-9 (Version None)
Quarter: 2004Q2

REPORT INFORMATION
  Report Type: 
  Country: None (occurrence: None)
  Receive Date: 20040406
  Receipt Date: 20040326
  Transmission Date: 20050107
  Serious: Yes (Hospitalization, Disabling)
  Sender: FDA-Public Use
  Company Number: THQ2004A00331

PATIENT
  Age: 73 Year
  Sex: Male

DRUGS (7)
  1. PIOGLITAZONE HCL [Suspect]
     Indication: DIABETES MELLITUS
     Dosage: 15 MG (1 D) PER ORAL
     Route: 048
     Dates: start: 20030531
  2. ACETYLSALICYLIC ACID ENTERIC COATED              (ACETYLSALICYLIC ACID [Concomitant]
  3. LIPITOR [Concomitant]
  4. RAMIPRIL [Concomitant]
  5. GLICLAZIDE (GLICLAZIDE) [Concomitant]
  6. METFORMIN HCL [Concomitant]
  7. ACARBOSE (ACARBOSE) [Concomitant]

REACTIONS (1)
  - BLADDER NEOPLASM [None]
